FAERS Safety Report 9288597 (Version 2)
Quarter: 2014Q1

REPORT INFORMATION
  Report Type: Report from Study
  Country: ES (occurrence: ES)
  Receive Date: 20130514
  Receipt Date: 20140223
  Transmission Date: 20141002
  Serious: Yes (Hospitalization)
  Sender: FDA-Public Use
  Company Number: ES-AMGEN-ESPCT2013032744

PATIENT
  Age: 75 Year
  Sex: Male

DRUGS (7)
  1. PANITUMUMAB [Suspect]
     Indication: HEAD AND NECK CANCER
     Dosage: UNK UNK, QWK
     Route: 042
     Dates: start: 20130328
  2. PACLITAXEL [Concomitant]
     Dosage: UNK UNK, QWK
     Route: 042
     Dates: start: 20130328
  3. BACTROBAN                          /00753901/ [Concomitant]
  4. OMEPRAZOLE [Concomitant]
     Dosage: 20 MG, QD
  5. METAMIZOLE [Concomitant]
     Dosage: 575 MG, Q8H
  6. LORAZEPAM [Concomitant]
     Dosage: UNK UNK, QD
  7. FORTASEC                           /00384301/ [Concomitant]
     Dosage: 2 MG, UNK

REACTIONS (2)
  - Diarrhoea [Recovered/Resolved]
  - Confusional state [Recovered/Resolved]
